FAERS Safety Report 18022498 (Version 1)
Quarter: 2020Q3

REPORT INFORMATION
  Report Type: Spontaneous
  Country: FR (occurrence: FR)
  Receive Date: 20200714
  Receipt Date: 20200714
  Transmission Date: 20201103
  Serious: Yes (Hospitalization)
  Sender: FDA-Public Use
  Company Number: FR-PFIZER INC-2020265504

PATIENT
  Age: 55 Year
  Sex: Female

DRUGS (13)
  1. SALBUTAMOL [Concomitant]
     Active Substance: ALBUTEROL
     Dosage: UNK
  2. NOVORAPID [Concomitant]
     Active Substance: INSULIN ASPART
     Dosage: UNK
  3. CHOLECALCIFEROL [Concomitant]
     Active Substance: CHOLECALCIFEROL
     Dosage: UNK
  4. APROVEL [Suspect]
     Active Substance: IRBESARTAN
     Indication: HYPERTENSION
     Dosage: 150 MG, 1X/DAY
     Route: 048
     Dates: start: 20200611
  5. BUDESONIDE. [Concomitant]
     Active Substance: BUDESONIDE
     Dosage: UNK
  6. ALLOPURINOL. [Concomitant]
     Active Substance: ALLOPURINOL
     Dosage: UNK
  7. FUMAFER [Concomitant]
     Active Substance: FERROUS FUMARATE
     Dosage: UNK
  8. METOPIRONE [Suspect]
     Active Substance: METYRAPONE
     Indication: PITUITARY-DEPENDENT CUSHING^S SYNDROME
     Dosage: 500 MG, 1X/DAY
     Route: 048
     Dates: start: 20200612, end: 20200620
  9. VICTOZA [Concomitant]
     Active Substance: LIRAGLUTIDE
     Dosage: UNK
  10. PREGABALINE [Concomitant]
     Active Substance: PREGABALIN
     Dosage: UNK
  11. ATORVASTATIN CALCIUM. [Suspect]
     Active Substance: ATORVASTATIN CALCIUM
     Dosage: 80 MG, 1X/DAY
     Route: 048
     Dates: start: 20200611
  12. TRESIBA [Concomitant]
     Active Substance: INSULIN DEGLUDEC
     Dosage: UNK
  13. PARACETAMOL [Concomitant]
     Active Substance: ACETAMINOPHEN
     Dosage: UNK

REACTIONS (2)
  - Hepatitis [Not Recovered/Not Resolved]
  - Hepatic encephalopathy [Not Recovered/Not Resolved]

NARRATIVE: CASE EVENT DATE: 20200619
